FAERS Safety Report 9251421 (Version 3)
Quarter: 2014Q1

REPORT INFORMATION
  Report Type: Spontaneous
  Country: US (occurrence: US)
  Receive Date: 20130424
  Receipt Date: 20140110
  Transmission Date: 20141002
  Serious: Yes (Disabling, Other)
  Sender: FDA-Public Use
  Company Number: US-ASTRAZENECA-2013SE27575

PATIENT
  Age: 64 Year
  Sex: Male
  Weight: 83 kg

DRUGS (28)
  1. NEXIUM [Suspect]
     Indication: GASTRIC ULCER
     Route: 048
     Dates: start: 20030916, end: 200412
  2. NEXIUM [Suspect]
     Indication: GASTROOESOPHAGEAL REFLUX DISEASE
     Route: 048
     Dates: start: 20030916, end: 200412
  3. NEXIUM [Suspect]
     Indication: GASTROOESOPHAGEAL REFLUX DISEASE
     Route: 048
     Dates: start: 20030916, end: 200412
  4. NEXIUM [Suspect]
     Indication: GASTRIC ULCER
     Dosage: ONCE A DAY
     Route: 048
     Dates: start: 200312
  5. NEXIUM [Suspect]
     Indication: GASTROOESOPHAGEAL REFLUX DISEASE
     Dosage: ONCE A DAY
     Route: 048
     Dates: start: 200312
  6. NEXIUM [Suspect]
     Indication: GASTROOESOPHAGEAL REFLUX DISEASE
     Dosage: ONCE A DAY
     Route: 048
     Dates: start: 200312
  7. NEXIUM [Suspect]
     Indication: GASTRIC ULCER
     Route: 048
     Dates: start: 200608, end: 200905
  8. NEXIUM [Suspect]
     Indication: GASTROOESOPHAGEAL REFLUX DISEASE
     Route: 048
     Dates: start: 200608, end: 200905
  9. NEXIUM [Suspect]
     Indication: GASTROOESOPHAGEAL REFLUX DISEASE
     Route: 048
     Dates: start: 200608, end: 200905
  10. NEXIUM [Suspect]
     Indication: GASTRIC ULCER
     Route: 048
     Dates: start: 20080726
  11. NEXIUM [Suspect]
     Indication: GASTROOESOPHAGEAL REFLUX DISEASE
     Route: 048
     Dates: start: 20080726
  12. NEXIUM [Suspect]
     Indication: GASTROOESOPHAGEAL REFLUX DISEASE
     Route: 048
     Dates: start: 20080726
  13. PRILOSEC [Suspect]
     Indication: GASTROOESOPHAGEAL REFLUX DISEASE
     Dosage: OTC
     Route: 048
     Dates: start: 199908, end: 199912
  14. PRILOSEC [Suspect]
     Indication: GASTROOESOPHAGEAL REFLUX DISEASE
     Dosage: OTC
     Route: 048
     Dates: start: 200007, end: 200108
  15. PRILOSEC [Suspect]
     Indication: GASTROOESOPHAGEAL REFLUX DISEASE
     Route: 048
     Dates: start: 200111
  16. PRILOSEC [Suspect]
     Indication: GASTROOESOPHAGEAL REFLUX DISEASE
     Route: 048
     Dates: start: 201004
  17. PRILOSEC [Suspect]
     Indication: GASTROOESOPHAGEAL REFLUX DISEASE
     Route: 048
     Dates: start: 20110426
  18. PROTONIX [Suspect]
     Route: 065
     Dates: start: 200502, end: 200608
  19. ZANTAC [Concomitant]
     Dates: start: 201102, end: 201106
  20. PLAVIX [Concomitant]
     Indication: ANTIPLATELET THERAPY
  21. LOVASTATIN [Concomitant]
     Indication: BLOOD CHOLESTEROL ABNORMAL
  22. FISH OIL [Concomitant]
     Indication: BLOOD TRIGLYCERIDES ABNORMAL
  23. METOPROLOL [Concomitant]
  24. LIPITOR [Concomitant]
     Dates: start: 20020926
  25. VIOXX [Concomitant]
     Dates: start: 20010808
  26. ZESTRIL [Concomitant]
     Dates: start: 20010808
  27. PEPCID [Concomitant]
     Dates: start: 199812
  28. CRESTOR [Concomitant]

REACTIONS (24)
  - Myocardial infarction [Unknown]
  - Hip fracture [Unknown]
  - Depression [Unknown]
  - Chest injury [Unknown]
  - Cardiac disorder [Unknown]
  - Osteoporosis [Unknown]
  - Bone disorder [Unknown]
  - Multiple fractures [Unknown]
  - Spinal fracture [Unknown]
  - Wrist fracture [Unknown]
  - Osteoarthritis [Unknown]
  - Angina pectoris [Unknown]
  - Arthritis [Unknown]
  - Atrophy [Unknown]
  - Calcium deficiency [Unknown]
  - Cataract [Unknown]
  - Chronic obstructive pulmonary disease [Unknown]
  - Diabetes mellitus [Unknown]
  - Exostosis [Unknown]
  - Intermittent claudication [Unknown]
  - Costochondritis [Unknown]
  - Spinal osteoarthritis [Unknown]
  - Intervertebral disc degeneration [Unknown]
  - Hypothyroidism [Unknown]
